FAERS Safety Report 25881170 (Version 1)
Quarter: 2025Q4

REPORT INFORMATION
  Report Type: Spontaneous
  Country: US (occurrence: US)
  Receive Date: 20251004
  Receipt Date: 20251004
  Transmission Date: 20260118
  Serious: No
  Sender: TOLMAR
  Company Number: US-Tolmar-TLM-2025-06556

PATIENT

DRUGS (4)
  1. JATENZO [Suspect]
     Active Substance: TESTOSTERONE UNDECANOATE
     Indication: Hypogonadism
     Dates: start: 202506
  2. JATENZO [Suspect]
     Active Substance: TESTOSTERONE UNDECANOATE
  3. TESTOSTERONE UNDECANOATE [Suspect]
     Active Substance: TESTOSTERONE UNDECANOATE
     Indication: Product used for unknown indication
  4. NATESTO [Suspect]
     Active Substance: TESTOSTERONE
     Indication: Product used for unknown indication
     Dosage: NASAL SPRAY
     Route: 045

REACTIONS (5)
  - Injection site bruising [Unknown]
  - Treatment noncompliance [Unknown]
  - Drug ineffective [Unknown]
  - Therapy interrupted [Unknown]
  - Insurance issue [Unknown]
